FAERS Safety Report 5101893-5 (Version None)
Quarter: 2006Q3

REPORT INFORMATION
  Report Type: 
  Country: None (occurrence: None)
  Receive Date: 20060907
  Receipt Date: 20060821
  Transmission Date: 20061208
  Serious: Yes (Hospitalization)
  Sender: FDA-Public Use
  Company Number: US200608004270

PATIENT
  Sex: Female

DRUGS (2)
  1. FORTEO [Suspect]
     Indication: OSTEOPOROSIS
     Dates: start: 20051201
  2. FORTEO PEN (TERIPARATIDE) PEN, DISPOSABLE [Concomitant]

REACTIONS (8)
  - BLEPHARITIS [None]
  - BONE DENSITY DECREASED [None]
  - CELLULITIS [None]
  - DRY EYE [None]
  - EYE DISORDER [None]
  - EYE INFECTION [None]
  - EYE SWELLING [None]
  - LACRIMAL DISORDER [None]
